FAERS Safety Report 5365439-9 (Version None)
Quarter: 2007Q2

REPORT INFORMATION
  Report Type: 
  Country: None (occurrence: None)
  Receive Date: 20070530
  Receipt Date: 20070205
  Transmission Date: 20071010
  Serious: No
  Sender: FDA-Public Use
  Company Number: 2006PV023483

PATIENT
  Age: 58 Year
  Sex: Male
  Weight: 96.1626 kg

DRUGS (5)
  1. BYETTA [Suspect]
     Indication: DIABETES MELLITUS NON-INSULIN-DEPENDENT
     Dosage: 10 MCG; BID; SC; 5 MCG; BID; SC
     Route: 058
     Dates: start: 20060919, end: 20061001
  2. BYETTA [Suspect]
     Indication: DIABETES MELLITUS NON-INSULIN-DEPENDENT
     Dosage: 10 MCG; BID; SC; 5 MCG; BID; SC
     Route: 058
     Dates: start: 20061001
  3. ACTOS [Concomitant]
  4. METFORMIN HCL [Concomitant]
  5. AMARYL [Concomitant]

REACTIONS (5)
  - ANOREXIA [None]
  - BLOOD GLUCOSE INCREASED [None]
  - DRUG EFFECT DECREASED [None]
  - NAUSEA [None]
  - WEIGHT DECREASED [None]
